FAERS Safety Report 18059582 (Version 1)
Quarter: 2020Q3

REPORT INFORMATION
  Report Type: Spontaneous
  Country: CA (occurrence: CA)
  Receive Date: 20200723
  Receipt Date: 20200723
  Transmission Date: 20201103
  Serious: Yes (Hospitalization)
  Sender: FDA-Public Use
  Company Number: CA-PFIZER INC-2020278625

PATIENT
  Age: 55 Year
  Sex: Male
  Weight: 86 kg

DRUGS (4)
  1. SOLU?MEDROL [Suspect]
     Active Substance: METHYLPREDNISOLONE SODIUM SUCCINATE
     Indication: COLITIS
     Dosage: 60 MG
     Route: 042
  2. ASACOL [Suspect]
     Active Substance: MESALAMINE
     Indication: COLITIS
     Dosage: 6400 MG, 1X/DAY
     Route: 065
  3. PREDNISONE. [Suspect]
     Active Substance: PREDNISONE
     Indication: COLITIS
     Dosage: 50 MG, 1X/DAY
     Route: 048
  4. ASACOL [Suspect]
     Active Substance: MESALAMINE
     Indication: COLITIS
     Dosage: 3200 MG, 1X/DAY
     Route: 065

REACTIONS (2)
  - Large intestinal ulcer [Unknown]
  - Drug ineffective [Unknown]
